FAERS Safety Report 6291961-7 (Version None)
Quarter: 2009Q3

REPORT INFORMATION
  Report Type: 
  Country: None (occurrence: None)
  Receive Date: 20090729
  Receipt Date: 20090718
  Transmission Date: 20100115
  Serious: Yes (Hospitalization, Other)
  Sender: FDA-Public Use
  Company Number: 2009AP002956

PATIENT
  Age: 23 Year
  Sex: Female

DRUGS (2)
  1. CYCLOSPORINE [Suspect]
     Indication: HISTIOCYTOSIS HAEMATOPHAGIC
     Dosage: 2 MG/KG; QD;
  2. METHYLPREDNISOLONE [Suspect]
     Indication: HISTIOCYTOSIS HAEMATOPHAGIC
     Dosage: GM; QD; MG/KG/QD

REACTIONS (12)
  - ANAEMIA HAEMOLYTIC AUTOIMMUNE [None]
  - CARDIAC FAILURE ACUTE [None]
  - CHOLANGITIS [None]
  - CHOLESTASIS [None]
  - CONDITION AGGRAVATED [None]
  - HEPARIN-INDUCED THROMBOCYTOPENIA [None]
  - HYPERBILIRUBINAEMIA [None]
  - PANCREATITIS [None]
  - RENAL FAILURE ACUTE [None]
  - SERUM FERRITIN INCREASED [None]
  - SYSTEMIC LUPUS ERYTHEMATOSUS [None]
  - THROMBOCYTOPENIA [None]
